FAERS Safety Report 12556207 (Version 1)
Quarter: 2016Q3

REPORT INFORMATION
  Report Type: Spontaneous
  Country: MY (occurrence: MY)
  Receive Date: 20160714
  Receipt Date: 20160714
  Transmission Date: 20161109
  Serious: Yes (Other)
  Sender: FDA-Public Use
  Company Number: MY-PFIZER INC-2016334664

PATIENT
  Age: 3 Day
  Sex: Male

DRUGS (1)
  1. PROSTIN VR PEDIATRIC [Suspect]
     Active Substance: ALPROSTADIL
     Indication: TRANSPOSITION OF THE GREAT VESSELS
     Dosage: UNK, DAILY
     Route: 042

REACTIONS (3)
  - White blood cell count increased [Recovered/Resolved]
  - Sepsis neonatal [Recovered/Resolved]
  - Pyrexia [Recovered/Resolved]

NARRATIVE: CASE EVENT DATE: 20150413
